FAERS Safety Report 6739106-0 (Version None)
Quarter: 2010Q2

REPORT INFORMATION
  Report Type: 
  Country: None (occurrence: None)
  Receive Date: 20100525
  Receipt Date: 20100512
  Transmission Date: 20101027
  Serious: No
  Sender: FDA-Public Use
  Company Number: US-BIOGENIDEC-2010BI014128

PATIENT
  Age: 45 Day
  Sex: Male

DRUGS (2)
  1. TYSABRI [Suspect]
     Indication: MULTIPLE SCLEROSIS
     Route: 042
     Dates: start: 20091202
  2. PRESCRIPTION MEDICATIONS (NOS) [Concomitant]
     Indication: HEADACHE

REACTIONS (1)
  - AMNESIA [None]
